FAERS Safety Report 25193212 (Version 4)
Quarter: 2025Q4

REPORT INFORMATION
  Report Type: Report from Study
  Country: US (occurrence: US)
  Receive Date: 20250414
  Receipt Date: 20251205
  Transmission Date: 20260117
  Serious: Yes (Hospitalization, Other)
  Sender: ABBVIE
  Company Number: US-ABBVIE-6211286

PATIENT
  Age: 62 Year
  Sex: Female

DRUGS (6)
  1. RINVOQ [Suspect]
     Active Substance: UPADACITINIB
     Indication: Colitis ulcerative
     Dosage: 45 MG DAILY FOR 8 WEEKS THERAPY END DATE 2025
     Route: 048
     Dates: start: 20250318
  2. RINVOQ [Suspect]
     Active Substance: UPADACITINIB
     Indication: Colitis ulcerative
     Dosage: STRENGTH : 30 MG DAILY FOR 1 MONTH THERAPY END DATE 2025
     Route: 048
     Dates: start: 202505
  3. RINVOQ [Suspect]
     Active Substance: UPADACITINIB
     Indication: Colitis ulcerative
     Dosage: STRENGTH: 45 MG DAILY, THERAPY END DATE 2025
     Route: 048
     Dates: start: 202506
  4. RINVOQ [Suspect]
     Active Substance: UPADACITINIB
     Indication: Colitis ulcerative
     Dosage: 45 MG THERAPY START DATE 2025
     Route: 048
     Dates: end: 20251014
  5. RINVOQ [Suspect]
     Active Substance: UPADACITINIB
     Indication: Colitis ulcerative
     Dosage: STRENGTH;30 MG
     Route: 048
     Dates: start: 202511
  6. STELARA [Concomitant]
     Active Substance: USTEKINUMAB
     Indication: Product used for unknown indication

REACTIONS (19)
  - Postoperative wound infection [Not Recovered/Not Resolved]
  - Fatigue [Unknown]
  - Incision site abscess [Not Recovered/Not Resolved]
  - Incisional hernia [Not Recovered/Not Resolved]
  - Hypersomnia [Unknown]
  - Incision site haemorrhage [Unknown]
  - Colitis ulcerative [Not Recovered/Not Resolved]
  - Rectal spasm [Not Recovered/Not Resolved]
  - Proctalgia [Unknown]
  - Nail infection [Unknown]
  - Myalgia [Unknown]
  - Gingival pain [Unknown]
  - Arthralgia [Unknown]
  - Insomnia [Unknown]
  - Mucous stools [Unknown]
  - Therapeutic product effect incomplete [Unknown]
  - Gastrointestinal motility disorder [Not Recovered/Not Resolved]
  - Anal incontinence [Not Recovered/Not Resolved]
  - Product use issue [Unknown]

NARRATIVE: CASE EVENT DATE: 20250101
